FAERS Safety Report 8905205 (Version 1)
Quarter: 2012Q4

REPORT INFORMATION
  Report Type: 
  Country: CA (occurrence: CA)
  Receive Date: 20121111
  Receipt Date: 20121111
  Transmission Date: 20130627
  Serious: Yes (Other)
  Sender: FDA-Public Use
  Company Number: PHMT2007CA01109

PATIENT
  Age: 43 Year
  Sex: Female

DRUGS (2)
  1. SANDOSTATIN LAR [Suspect]
     Dosage: 20 mg, every 4 weeks
     Route: 030
     Dates: start: 20070123
  2. DOSTINEX [Concomitant]

REACTIONS (18)
  - Gastritis [Unknown]
  - Gastric dilatation [Unknown]
  - Cholelithiasis [Unknown]
  - Abdominal pain upper [Unknown]
  - Pain [Unknown]
  - Tremor [Unknown]
  - Pain in extremity [Unknown]
  - Hyperhidrosis [Unknown]
  - Hot flush [Unknown]
  - Malaise [Unknown]
  - Constipation [Unknown]
  - Asthenia [Unknown]
  - Dizziness [Unknown]
  - Blood pressure increased [Unknown]
  - Injection site pain [Unknown]
  - Nausea [Unknown]
  - Headache [Unknown]
  - Blood glucose increased [Unknown]
